FAERS Safety Report 16947426 (Version 2)
Quarter: 2019Q4

REPORT INFORMATION
  Report Type: Spontaneous
  Country: US (occurrence: US)
  Receive Date: 20191022
  Receipt Date: 20191105
  Transmission Date: 20200122
  Serious: Yes (Other)
  Sender: FDA-Public Use
  Company Number: US-PTC THERAPEUTICS, INC.-US-2019PTC001381

PATIENT

DRUGS (2)
  1. EMFLAZA [Suspect]
     Active Substance: DEFLAZACORT
     Indication: DUCHENNE MUSCULAR DYSTROPHY
     Dosage: 18 MG, QD
     Route: 048
  2. EMFLAZA [Suspect]
     Active Substance: DEFLAZACORT
     Indication: BECKER^S MUSCULAR DYSTROPHY
     Dosage: 24 MG, QD
     Route: 048
     Dates: start: 20170907

REACTIONS (10)
  - Cardiomyopathy [Unknown]
  - Snoring [Unknown]
  - Weight increased [Unknown]
  - Pulmonary congestion [Unknown]
  - Discomfort [Unknown]
  - Pulmonary function test decreased [Unknown]
  - Gait inability [Unknown]
  - Muscular weakness [Unknown]
  - Cough [Unknown]
  - Insomnia [Unknown]
